FAERS Safety Report 25980845 (Version 2)
Quarter: 2025Q4

REPORT INFORMATION
  Report Type: Report from Study
  Country: KR (occurrence: KR)
  Receive Date: 20251030
  Receipt Date: 20251229
  Transmission Date: 20260117
  Serious: Yes (Hospitalization)
  Sender: ALEXION PHARMACEUTICALS
  Company Number: KR-ASTRAZENECA-202510GLO024814KR

PATIENT
  Age: 73 Year
  Sex: Male
  Weight: 62.5 kg

DRUGS (26)
  1. TREMELIMUMAB [Suspect]
     Active Substance: TREMELIMUMAB
     Indication: Hepatocellular carcinoma
     Dosage: 300 MILLIGRAM, SINGLE
  2. DURVALUMAB [Suspect]
     Active Substance: DURVALUMAB
     Dosage: 1500 MILLIGRAM, Q4W
     Dates: start: 20250917
  3. DURVALUMAB [Suspect]
     Active Substance: DURVALUMAB
     Dosage: 1500 MILLIGRAM, Q4W
     Dates: start: 20251028
  4. AMLODIPINE BESYLATE\HYDROCHLOROTHIAZIDE\OLMESARTAN MEDOXOMIL [Concomitant]
     Active Substance: AMLODIPINE BESYLATE\HYDROCHLOROTHIAZIDE\OLMESARTAN MEDOXOMIL
     Indication: Hypertension
     Dosage: UNK
     Route: 065
  5. DIABEX [Concomitant]
     Active Substance: METFORMIN HYDROCHLORIDE
     Indication: Diabetes mellitus
     Dosage: 1000 MG
     Route: 065
  6. Dulackhan [Concomitant]
     Indication: Prophylaxis
     Dosage: 15 MILLIGRAM
     Route: 065
  7. BEECOM [Concomitant]
     Indication: Prophylaxis
     Dosage: UNK
     Route: 065
  8. URSODIOL [Concomitant]
     Active Substance: URSODIOL
     Indication: Hepatic cirrhosis
     Dosage: 200 MILLIGRAM
     Route: 065
  9. PROPRANOLOL HYDROCHLORIDE [Concomitant]
     Active Substance: PROPRANOLOL HYDROCHLORIDE
     Indication: Varices oesophageal
     Dosage: 10 MILLIGRAM
     Route: 065
  10. Godex [Concomitant]
     Indication: Hepatic cirrhosis
     Dosage: UNK
     Route: 065
  11. METOCLOPRAMIDE HYDROCHLORIDE [Concomitant]
     Active Substance: METOCLOPRAMIDE HYDROCHLORIDE
     Indication: Prophylaxis
     Dosage: 5 MILLIGRAM
     Route: 065
  12. Furix [Concomitant]
     Indication: Ascites
     Dosage: 20 MILLIGRAM
     Route: 065
     Dates: start: 20250917, end: 20251012
  13. SPIRONOLACTONE [Concomitant]
     Active Substance: SPIRONOLACTONE
     Indication: Ascites
     Dosage: 50 MILLIGRAM
     Route: 065
     Dates: start: 20250917, end: 20251012
  14. MEGESTROL [Concomitant]
     Active Substance: MEGESTROL
     Indication: Decreased appetite
     Dosage: 625 MILLIGRAM
     Route: 065
  15. VITAMINS [Concomitant]
     Active Substance: VITAMINS
     Indication: Decreased appetite
     Dosage: UNK
     Route: 065
  16. ORNITHINE ASPARTATE [Concomitant]
     Active Substance: ORNITHINE ASPARTATE
     Indication: Decreased appetite
     Dosage: 500 MILLIMETRE
     Route: 065
  17. TORANZIN [Concomitant]
     Dosage: 100, MILLIGRAM PER MILLILITRE
     Route: 065
  18. HEPATAMINE [Concomitant]
     Active Substance: ALANINE\ARGININE\CYSTEINE HYDROCHLORIDE\GLYCINE\HISTIDINE\ISOLEUCINE\LEUCINE\LYSINE ACETATE\METHIONI
     Indication: Decreased appetite
     Dosage: UNK
  19. PENIRAMIN [Concomitant]
     Indication: Pruritus
     Dosage: UNK
     Route: 065
     Dates: start: 20251017, end: 20251017
  20. Almagel [Concomitant]
     Dosage: 1 GRAM PER KILOGRAM, GRAM PER KILOGRAM
     Route: 065
     Dates: start: 20251017, end: 20251017
  21. CERAZINE [Concomitant]
     Indication: Pruritus
     Dosage: 10 MILLIGRAM
     Route: 065
  22. TASNA [Concomitant]
     Indication: Prophylaxis
     Dosage: 500 MG
     Route: 065
     Dates: start: 20251020, end: 20251025
  23. AMINO ACIDS, SOURCE UNSPECIFIED [Concomitant]
     Active Substance: AMINO ACIDS, SOURCE UNSPECIFIED
     Indication: Hepatic encephalopathy
     Dosage: UNK
     Route: 065
  24. RIFAXIMIN [Concomitant]
     Active Substance: RIFAXIMIN
     Indication: Hepatic encephalopathy
     Dosage: 200 MG
  25. LORAZEPAM [Concomitant]
     Active Substance: LORAZEPAM
     Indication: Insomnia
     Dosage: 0.5 MG
     Route: 065
  26. LACTICARE [Concomitant]
     Indication: Prophylaxis
     Dosage: UNK
     Route: 065

REACTIONS (3)
  - Decreased appetite [Recovered/Resolved]
  - Asthenia [Unknown]
  - Weight decreased [Unknown]

NARRATIVE: CASE EVENT DATE: 20251013
